FAERS Safety Report 8490856-8 (Version None)
Quarter: 2012Q3

REPORT INFORMATION
  Report Type: 
  Country: None (occurrence: None)
  Receive Date: 20120706
  Receipt Date: 20120704
  Transmission Date: 20120928
  Serious: Yes (Death)
  Sender: FDA-Public Use
  Company Number: US-AMGEN-USASP2011043194

PATIENT
  Age: 80 Year
  Sex: Male
  Weight: 84.807 kg

DRUGS (4)
  1. CARBIDOPA AND LEVODOPA [Concomitant]
  2. WINRHO                             /01995701/ [Concomitant]
  3. CORTICOSTEROIDS [Concomitant]
     Indication: IDIOPATHIC THROMBOCYTOPENIC PURPURA
  4. NPLATE [Suspect]
     Indication: IDIOPATHIC THROMBOCYTOPENIC PURPURA
     Dosage: 3 MUG/KG, QWK
     Route: 058
     Dates: start: 20110729, end: 20110812

REACTIONS (3)
  - THROMBOCYTOPENIA [None]
  - ERYTHROPOIESIS ABNORMAL [None]
  - HAEMORRHAGE INTRACRANIAL [None]
